FAERS Safety Report 9257735 (Version 1)
Quarter: 2013Q2

REPORT INFORMATION
  Report Type: Report from Study
  Country: CA (occurrence: CA)
  Receive Date: 20130426
  Receipt Date: 20130426
  Transmission Date: 20140414
  Serious: Yes (Other)
  Sender: FDA-Public Use
  Company Number: CA-NOVOPROD-376230

PATIENT
  Age: 45 Year
  Sex: Female
  Weight: 160 kg

DRUGS (5)
  1. LIRAGLUTIDE FLEXPEN [Suspect]
     Indication: TYPE 2 DIABETES MELLITUS
     Dosage: 1.2 MG, UNK
     Route: 058
     Dates: start: 20130410
  2. SYNTHROID [Concomitant]
  3. METFORMIN [Concomitant]
  4. OMEGA 3                            /01334101/ [Concomitant]
  5. GLUCOSAMINE [Concomitant]

REACTIONS (5)
  - Palpitations [Not Recovered/Not Resolved]
  - Hot flush [Recovered/Resolved]
  - Nausea [Recovered/Resolved]
  - Eructation [Not Recovered/Not Resolved]
  - Hypoglycaemia [Not Recovered/Not Resolved]
